FAERS Safety Report 5159257-4 (Version None)
Quarter: 2006Q4

REPORT INFORMATION
  Report Type: 
  Country: None (occurrence: None)
  Receive Date: 20061117
  Receipt Date: 20061108
  Transmission Date: 20070319
  Serious: Yes (Hospitalization)
  Sender: FDA-Public Use
  Company Number: 083-20785-06110672

PATIENT
  Age: 64 Year
  Sex: Male

DRUGS (3)
  1. THALIDOMIDE [Suspect]
     Indication: AMYLOIDOSIS
     Dosage: ORAL
     Route: 048
     Dates: start: 20040601, end: 20050101
  2. PREDNISOLONE [Concomitant]
  3. MELPHALAN [Concomitant]

REACTIONS (3)
  - AMYLOIDOSIS [None]
  - BRAIN NATRIURETIC PEPTIDE INCREASED [None]
  - DISEASE PROGRESSION [None]
